FAERS Safety Report 4916663-8 (Version None)
Quarter: 2006Q1

REPORT INFORMATION
  Report Type: 
  Country: None (occurrence: None)
  Receive Date: 20060216
  Receipt Date: 20060216
  Transmission Date: 20060701
  Serious: Yes (Hospitalization)
  Sender: FDA-Public Use
  Company Number: None

PATIENT
  Age: 55 Year
  Sex: Male
  Weight: 81 kg

DRUGS (3)
  1. CAPECITABINE 2000 MG PO BID [Suspect]
     Indication: COLON CANCER METASTATIC
     Dates: start: 20050930, end: 20051004
  2. BEVACIZUMAB [Concomitant]
  3. OXALIPLATIN [Concomitant]

REACTIONS (2)
  - CHEST PAIN [None]
  - VASOSPASM [None]
